FAERS Safety Report 9712781 (Version 1)
Quarter: 2013Q4

REPORT INFORMATION
  Report Type: Spontaneous
  Country: FR (occurrence: FR)
  Receive Date: 20131126
  Receipt Date: 20131126
  Transmission Date: 20140711
  Serious: Yes (Other)
  Sender: FDA-Public Use
  Company Number: FR-ASTRAZENECA-2013SE85325

PATIENT
  Age: 71 Year
  Sex: Male

DRUGS (2)
  1. MOPRAL [Suspect]
     Route: 048
     Dates: end: 20120301
  2. ZYLORIC [Suspect]
     Route: 065

REACTIONS (2)
  - Eosinophilia [Unknown]
  - Bundle branch block right [Unknown]
